FAERS Safety Report 10517320 (Version 1)
Quarter: 2014Q4

REPORT INFORMATION
  Report Type: Spontaneous
  Country: US (occurrence: None)
  Receive Date: 20141003
  Receipt Date: 20141003
  Transmission Date: 20150528
  Serious: Yes (Hospitalization)
  Sender: FDA-Public Use
  Company Number: 1393652

PATIENT
  Age: 56 Year
  Sex: Male

DRUGS (3)
  1. RIBAVIRIN (RIBAVIRIN) [Suspect]
     Active Substance: RIBAVIRIN
     Indication: HEPATITIS C
     Dosage: 600 MG QAM , 400 MG QPM , DURATION
     Dates: end: 20140429
  2. SOVALDI [Suspect]
     Active Substance: SOFOSBUVIR
     Indication: HEPATITIS C
     Dosage: DURATION 6 WEEKS (400 MG, 1 IN 1 D), ORAL
     Dates: end: 20140429
  3. PEGASYS [Suspect]
     Active Substance: PEGINTERFERON ALFA-2A
     Indication: HEPATITIS C
     Route: 058
     Dates: end: 20140429

REACTIONS (5)
  - Haemoglobin decreased [None]
  - Dyspnoea [None]
  - Dizziness [None]
  - Fatigue [None]
  - Haematocrit decreased [None]
